FAERS Safety Report 18797939 (Version 6)
Quarter: 2021Q1

REPORT INFORMATION
  Report Type: Spontaneous
  Country: US (occurrence: US)
  Receive Date: 20210128
  Receipt Date: 20210325
  Transmission Date: 20210419
  Serious: No
  Sender: FDA-Public Use
  Company Number: US-AMGEN-USASP2021011595

PATIENT
  Sex: Female

DRUGS (4)
  1. NEULASTA [Suspect]
     Active Substance: PEGFILGRASTIM
     Indication: PRODUCT USED FOR UNKNOWN INDICATION
     Dosage: 6 MILLIGRAM, Q2WK, AFTER CHEMO
     Route: 058
  2. NEULASTA [Suspect]
     Active Substance: PEGFILGRASTIM
     Dosage: 6 MILLIGRAM, Q2WK, AFTER CHEMO
     Route: 058
  3. NEULASTA [Suspect]
     Active Substance: PEGFILGRASTIM
     Dosage: 6 MILLIGRAM, Q2WK, AFTER CHEMO
     Route: 058
  4. NEULASTA [Suspect]
     Active Substance: PEGFILGRASTIM
     Dosage: 6 MILLIGRAM, Q2WK, AFTER CHEMO
     Route: 058

REACTIONS (2)
  - Device malfunction [Unknown]
  - Device issue [Unknown]
